FAERS Safety Report 7907528-8 (Version None)
Quarter: 2011Q4

REPORT INFORMATION
  Report Type: 
  Country: None (occurrence: None)
  Receive Date: 20111110
  Receipt Date: 20111027
  Transmission Date: 20120403
  Serious: Yes (Hospitalization)
  Sender: FDA-Public Use
  Company Number: PHHY2009JP15645

PATIENT
  Sex: Female
  Weight: 44 kg

DRUGS (45)
  1. EXJADE [Suspect]
     Indication: IRON OVERLOAD
     Dosage: 500 MG, QD
     Route: 048
     Dates: start: 20080716, end: 20080728
  2. GLAKAY [Concomitant]
     Indication: APLASTIC ANAEMIA
     Dosage: 45 MG, UNK
     Route: 048
     Dates: start: 20080716, end: 20090615
  3. AMLODIPINE [Concomitant]
     Indication: CARDIAC FAILURE CONGESTIVE
     Dosage: 5 MG, UNK
     Route: 048
     Dates: start: 20080716, end: 20090615
  4. ABILIT [Concomitant]
     Indication: CARDIAC FAILURE CONGESTIVE
     Dosage: 100 MG, UNK
     Route: 048
     Dates: start: 20080716, end: 20081008
  5. VITAMEDIN [Concomitant]
     Dosage: 1 DF, UNK
     Route: 042
     Dates: start: 20060615, end: 20090701
  6. FOY [Concomitant]
     Dosage: 200 MG, UNK
     Route: 042
     Dates: start: 20090615, end: 20090701
  7. FUNGUARD [Concomitant]
     Dosage: 150 MG, UNK
     Route: 042
     Dates: start: 20090615, end: 20090621
  8. MINOPHAGEN C [Concomitant]
     Dosage: 40 ML, UNK
     Route: 042
     Dates: start: 20090615, end: 20090710
  9. SLOW-K [Concomitant]
     Indication: HYPOKALAEMIA
     Dosage: 600 MG, UNK
     Route: 048
     Dates: start: 20080716, end: 20090408
  10. CEFOPERAZONE SODIUM [Concomitant]
     Dosage: 1 G, UNK
     Route: 042
  11. EXJADE [Suspect]
     Dosage: 250 MG, DAILY
     Route: 048
     Dates: start: 20080729, end: 20081128
  12. DESFERAL [Concomitant]
     Route: 030
     Dates: start: 20070327, end: 20080716
  13. ADONA [Concomitant]
     Indication: APLASTIC ANAEMIA
     Dosage: 30 MG, UNK
     Route: 048
     Dates: start: 20080716, end: 20090615
  14. BAKTAR [Concomitant]
     Indication: CARDIAC FAILURE CONGESTIVE
     Dosage: 1 G, UNK
     Route: 048
     Dates: start: 20081231, end: 20090715
  15. DIURETICS [Concomitant]
  16. NEOMALLERMIN TR [Concomitant]
     Indication: APLASTIC ANAEMIA
     Dosage: 12 MG, UNK
     Route: 048
     Dates: start: 20080716, end: 20090715
  17. PRIMOBOLAN-DEPOT INJ [Concomitant]
     Indication: APLASTIC ANAEMIA
     Dosage: 15 MG, UNK
     Route: 048
     Dates: start: 20080716
  18. PURSENNID                               /SCH/ [Concomitant]
     Indication: APLASTIC ANAEMIA
     Dosage: 24 MG, UNK
     Route: 048
     Dates: start: 20080716
  19. LASIX [Concomitant]
     Indication: APLASTIC ANAEMIA
     Dosage: 20 MG, UNK
     Route: 048
     Dates: start: 20090615, end: 20090701
  20. DIART [Concomitant]
     Indication: CARDIAC FAILURE CONGESTIVE
     Dosage: 60 MG, UNK
     Route: 048
     Dates: start: 20080716, end: 20090408
  21. AMIKACIN SULFATE [Concomitant]
     Dosage: 200 MG, UNK
     Route: 042
     Dates: end: 20090628
  22. CEFOPERAZONE SODIUM [Concomitant]
     Indication: CARDIAC FAILURE CONGESTIVE
     Dosage: 2 G, UNK
     Route: 042
     Dates: start: 20081202, end: 20081222
  23. GRAN [Concomitant]
     Dosage: 150 UG, UNK
     Route: 042
     Dates: start: 20080716
  24. EVAMYL [Concomitant]
     Indication: APLASTIC ANAEMIA
     Dosage: 1 MG, UNK
     Route: 048
     Dates: start: 20080716, end: 20090116
  25. LUVOX [Concomitant]
     Indication: CARDIAC FAILURE CONGESTIVE
     Dosage: 50 MG, UNK
     Route: 048
     Dates: start: 20081008, end: 20090310
  26. GRAN [Concomitant]
     Dosage: 150 UG, UNK
     Route: 042
     Dates: end: 20090408
  27. FAMOTIDINE [Concomitant]
     Dosage: 20 MG, UNK
     Route: 048
     Dates: start: 20090615, end: 20090701
  28. PLATELETS [Concomitant]
     Dosage: 10 U, UNK
     Dates: start: 20090116, end: 20090715
  29. RED BLOOD CELLS [Concomitant]
     Dates: start: 20090408, end: 20090715
  30. EXJADE [Suspect]
     Dosage: 500 MG, QD
     Route: 048
     Dates: start: 20090310
  31. NEORAL [Suspect]
     Indication: APLASTIC ANAEMIA
     Dosage: 25 MG, QD
     Route: 048
     Dates: start: 20080716, end: 20081121
  32. CEFOPERAZONE SODIUM [Concomitant]
     Dosage: 2 G, UNK
     Route: 042
     Dates: end: 20090628
  33. GAMIMUNE N 5% [Concomitant]
     Dosage: 5 G, UNK
     Route: 042
     Dates: start: 20090615, end: 20090616
  34. PHYSIO 140 [Concomitant]
     Dosage: 500 ML, UNK
     Route: 042
     Dates: start: 20090615, end: 20090701
  35. EVAMYL [Concomitant]
     Dosage: 0.5 MG, UNK
     Route: 048
     Dates: end: 20090715
  36. ALDACTONE [Concomitant]
     Indication: HYPERTENSION
     Dosage: 12.5 MG, UNK
     Route: 048
     Dates: start: 20080716, end: 20090128
  37. CEFAZOLIN SODIUM [Concomitant]
     Indication: CARDIAC FAILURE CONGESTIVE
     Dosage: 4 G, UNK
     Route: 042
     Dates: start: 20081128, end: 20081201
  38. ALLOPURINOL [Concomitant]
     Dosage: 50 MG, UNK
     Route: 048
     Dates: start: 20090330, end: 20090615
  39. AMINO ACIDS/CARBOHYDRATES/MINERALS/VITAMINS [Concomitant]
     Dosage: 100 ML, UNK
     Route: 042
     Dates: start: 20090116, end: 20090514
  40. ALFAROL [Concomitant]
     Indication: APLASTIC ANAEMIA
     Dosage: 0.5 UG, UNK
     Route: 048
     Dates: start: 20080716, end: 20081121
  41. LANSOPRAZOLE [Concomitant]
     Indication: APLASTIC ANAEMIA
     Dosage: 30 MG, UNK
     Route: 048
     Dates: start: 20080716, end: 20081231
  42. TRANEXAMIC ACID [Concomitant]
     Indication: APLASTIC ANAEMIA
     Dosage: 750 MG, UNK
     Route: 048
     Dates: start: 20080716, end: 20090615
  43. PRIMOBOLAN-DEPOT INJ [Concomitant]
     Dosage: 15 MG, UNK
     Route: 048
     Dates: end: 20090615
  44. AMIKACIN SULFATE [Concomitant]
     Indication: CARDIAC FAILURE CONGESTIVE
     Dosage: 200 MG, UNK
     Route: 042
     Dates: start: 20081128
  45. PHYSIO 35 [Concomitant]
     Dosage: 500 ML, UNK
     Route: 042
     Dates: start: 20090615, end: 20090701

REACTIONS (9)
  - HEPATOBILIARY INFECTION [None]
  - HYPERURICAEMIA [None]
  - ASPARTATE AMINOTRANSFERASE INCREASED [None]
  - DEHYDRATION [None]
  - SERUM FERRITIN INCREASED [None]
  - BLOOD UREA INCREASED [None]
  - ALANINE AMINOTRANSFERASE INCREASED [None]
  - CHOLELITHIASIS [None]
  - BLOOD CREATININE INCREASED [None]
